FAERS Safety Report 13370296 (Version 1)
Quarter: 2017Q1

REPORT INFORMATION
  Report Type: Report from Study
  Country: BR (occurrence: BR)
  Receive Date: 20170324
  Receipt Date: 20170324
  Transmission Date: 20170429
  Serious: Yes (Death, Hospitalization)
  Sender: FDA-Public Use
  Company Number: BR-BAYER-2017-052137

PATIENT
  Age: 62 Year
  Sex: Female

DRUGS (1)
  1. BETAFERON [Suspect]
     Active Substance: INTERFERON BETA-1B

REACTIONS (3)
  - Hypophagia [None]
  - Dyspnoea [None]
  - Death [Fatal]

NARRATIVE: CASE EVENT DATE: 20170220
